FAERS Safety Report 14611684 (Version 1)
Quarter: 2018Q1

REPORT INFORMATION
  Report Type: Spontaneous
  Country: US (occurrence: US)
  Receive Date: 20180308
  Receipt Date: 20180308
  Transmission Date: 20180509
  Serious: No
  Sender: FDA-Public Use
  Company Number: US-PFIZER INC-2018092327

PATIENT
  Age: 57 Year
  Sex: Male
  Weight: 104.3 kg

DRUGS (1)
  1. DOFETILIDE. [Suspect]
     Active Substance: DOFETILIDE
     Indication: ATRIAL FIBRILLATION
     Dosage: 500 UG, 2X/DAY [EVERY 12 HOURS]
     Route: 048
     Dates: start: 201801, end: 201802

REACTIONS (1)
  - Drug ineffective [Not Recovered/Not Resolved]
